FAERS Safety Report 5929818-0 (Version None)
Quarter: 2008Q4

REPORT INFORMATION
  Report Type: 
  Country: None (occurrence: None)
  Receive Date: 20081024
  Receipt Date: 20081020
  Transmission Date: 20090506
  Serious: Yes (Other)
  Sender: FDA-Public Use
  Company Number: US-JNJFOC-20081000351

PATIENT
  Sex: Female
  Weight: 88.45 kg

DRUGS (21)
  1. INVEGA [Suspect]
     Indication: BIPOLAR DISORDER
     Route: 048
  2. INVEGA [Suspect]
     Indication: SCHIZOPHRENIA
     Route: 048
  3. HALDOL [Interacting]
     Route: 048
  4. HALDOL [Interacting]
     Route: 048
  5. HALDOL [Interacting]
     Indication: BIPOLAR DISORDER
     Route: 048
  6. DEPAKOTE [Concomitant]
     Indication: BIPOLAR DISORDER
     Route: 048
  7. OTHER THERAPEUTIC MEDICATIONS [Concomitant]
  8. DEPAKOTE ER [Concomitant]
     Indication: BIPOLAR DISORDER
     Dosage: 1500 MG TWICE DAILY IN THE AM, 100 MG TWICE DAILY IN THE PM.
     Route: 048
  9. CLONAZEPAM [Concomitant]
     Indication: BIPOLAR DISORDER
     Dosage: 1 MG TWICE IN THE AM, 3 MG TWICE IN THE PM
     Route: 048
  10. RESTORIL [Concomitant]
     Indication: BIPOLAR DISORDER
     Route: 048
  11. BENEDRYL [Concomitant]
     Indication: EXTRAPYRAMIDAL DISORDER
     Route: 048
  12. LABETALOL HCL [Concomitant]
     Indication: HYPERTENSION
     Route: 048
  13. ALLOPURINOL [Concomitant]
     Indication: GOUT
     Route: 048
  14. PREVACID [Concomitant]
     Indication: GASTROOESOPHAGEAL REFLUX DISEASE
     Route: 048
  15. TYLENOL [Concomitant]
     Indication: HEADACHE
     Route: 048
  16. IBUPROFEN [Concomitant]
     Indication: HEADACHE
     Route: 048
  17. COZAAR [Concomitant]
     Indication: HYPERTENSION
     Route: 048
  18. ALBUTEROL [Concomitant]
     Indication: ASTHMA
     Route: 048
  19. FLOVENT [Concomitant]
     Indication: ASTHMA
     Route: 048
  20. SEREVENT [Concomitant]
     Indication: ASTHMA
     Route: 048
  21. SIMVASTATIN [Concomitant]
     Indication: BLOOD CHOLESTEROL ABNORMAL

REACTIONS (33)
  - ABDOMINAL PAIN [None]
  - AMNESIA [None]
  - ANOREXIA [None]
  - ANXIETY [None]
  - BLOOD GLUCOSE DECREASED [None]
  - CONSTIPATION [None]
  - CRYING [None]
  - DIABETES MELLITUS INADEQUATE CONTROL [None]
  - DIABETIC COMA [None]
  - DISORIENTATION [None]
  - DIZZINESS [None]
  - DRUG INTERACTION [None]
  - DRY MOUTH [None]
  - ELECTROCARDIOGRAM QT PROLONGED [None]
  - EYE SWELLING [None]
  - HEADACHE [None]
  - HYPERPROLACTINAEMIA [None]
  - HYPERSENSITIVITY [None]
  - HYPERTENSION [None]
  - MANIA [None]
  - MENORRHAGIA [None]
  - MUSCULAR WEAKNESS [None]
  - NAUSEA [None]
  - PALPITATIONS [None]
  - PANIC DISORDER [None]
  - PITUITARY TUMOUR [None]
  - RENAL FAILURE [None]
  - RETCHING [None]
  - SOMNOLENCE [None]
  - TACHYCARDIA [None]
  - URINARY RETENTION [None]
  - VISION BLURRED [None]
  - VOMITING [None]
